FAERS Safety Report 7649635-3 (Version None)
Quarter: 2011Q3

REPORT INFORMATION
  Report Type: 
  Country: None (occurrence: None)
  Receive Date: 20110802
  Receipt Date: 20110728
  Transmission Date: 20111222
  Serious: No
  Sender: FDA-Public Use
  Company Number: US-PFIZER INC-2011172526

PATIENT
  Sex: Female
  Weight: 104.31 kg

DRUGS (4)
  1. NEBIVOLOL [Concomitant]
     Dosage: UNK
  2. ALTACE [Concomitant]
     Dosage: UNK
  3. PROCARDIA XL [Suspect]
     Indication: HYPERTENSION
     Dosage: 30 MG, 1X/DAY
     Route: 048
     Dates: start: 19920101
  4. NIFEDIPINE [Suspect]
     Indication: HYPERTENSION
     Dosage: UNK

REACTIONS (2)
  - NAUSEA [None]
  - HEADACHE [None]
